FAERS Safety Report 4920348-1 (Version None)
Quarter: 2006Q1

REPORT INFORMATION
  Report Type: 
  Country: None (occurrence: None)
  Receive Date: 20060223
  Receipt Date: 20050609
  Transmission Date: 20060701
  Serious: Yes (Hospitalization)
  Sender: FDA-Public Use
  Company Number: US-MERCK-0506USA01547

PATIENT
  Age: 87 Year
  Sex: Male
  Weight: 78 kg

DRUGS (5)
  1. VIOXX [Suspect]
     Indication: OSTEOARTHRITIS
     Route: 048
     Dates: start: 20001101, end: 20010101
  2. ZOCOR [Concomitant]
     Route: 048
  3. ZOCOR [Concomitant]
     Route: 048
  4. PRILOSEC [Concomitant]
     Route: 048
  5. PRINIVIL [Concomitant]
     Route: 048

REACTIONS (4)
  - CATARACT [None]
  - GASTROINTESTINAL HAEMORRHAGE [None]
  - LACERATION [None]
  - MYOCARDIAL INFARCTION [None]
